FAERS Safety Report 10824264 (Version 3)
Quarter: 2016Q1

REPORT INFORMATION
  Report Type: Spontaneous
  Country: US (occurrence: US)
  Receive Date: 20150219
  Receipt Date: 20160201
  Transmission Date: 20160525
  Serious: No
  Sender: FDA-Public Use
  Company Number: US-ABBVIE-14K-163-1310891-00

PATIENT
  Age: 17 Year
  Sex: Female
  Weight: 92.8 kg

DRUGS (1)
  1. HUMIRA [Suspect]
     Active Substance: ADALIMUMAB
     Indication: PSORIASIS
     Route: 058
     Dates: start: 201408

REACTIONS (5)
  - Loss of consciousness [Recovered/Resolved]
  - Poor quality drug administered [Not Recovered/Not Resolved]
  - Liquid product physical issue [Unknown]
  - Dizziness [Recovered/Resolved]
  - Product packaging issue [Unknown]

NARRATIVE: CASE EVENT DATE: 20141107
